FAERS Safety Report 14349385 (Version 3)
Quarter: 2018Q1

REPORT INFORMATION
  Report Type: Spontaneous
  Country: US (occurrence: US)
  Receive Date: 20180104
  Receipt Date: 20180201
  Transmission Date: 20180509
  Serious: Yes (Other)
  Sender: FDA-Public Use
  Company Number: US-JNJFOC-20171232846

PATIENT
  Sex: Male

DRUGS (2)
  1. LISTERINE TOTAL CARE STAIN REMOVER ANTI CAVITY FRESHMINT [Suspect]
     Active Substance: SODIUM FLUORIDE
     Indication: DENTAL CARE
     Route: 048
  2. FISH OIL [Concomitant]
     Active Substance: FISH OIL
     Indication: DRUG THERAPY
     Route: 065

REACTIONS (2)
  - Application site burn [Recovered/Resolved]
  - Product quality issue [Unknown]
